FAERS Safety Report 7963469-1 (Version None)
Quarter: 2011Q4

REPORT INFORMATION
  Report Type: 
  Country: None (occurrence: None)
  Receive Date: 20111208
  Receipt Date: 20111206
  Transmission Date: 20120403
  Serious: Yes (Hospitalization)
  Sender: FDA-Public Use
  Company Number: IT-BAYER-2011-116607

PATIENT
  Age: 73 Year
  Sex: Female

DRUGS (5)
  1. VASERETIC [Concomitant]
     Dosage: DAILY DOSE 32.5 MG
     Route: 048
  2. IBRUPROFEN [Suspect]
     Dosage: DAILY DOSE 2 DF
     Route: 048
     Dates: start: 20100927, end: 20110926
  3. LANSOPRAZOLE [Concomitant]
     Dosage: DAILY DOSE 30 MG
     Route: 048
  4. BISOPROLOL FUMARATE [Concomitant]
     Dosage: DAILY DOSE 1.25 MG
     Route: 048
  5. ASPIRIN [Suspect]
     Dosage: 100 MG, QD
     Route: 048
     Dates: start: 20100927, end: 20110926

REACTIONS (2)
  - HAEMATEMESIS [None]
  - ANAEMIA [None]
